FAERS Safety Report 18288020 (Version 4)
Quarter: 2020Q4

REPORT INFORMATION
  Report Type: Spontaneous
  Country: CA (occurrence: CA)
  Receive Date: 20200921
  Receipt Date: 20201102
  Transmission Date: 20210113
  Serious: Yes (Other)
  Sender: FDA-Public Use
  Company Number: CA-ORION CORPORATION ORION PHARMA-20_00010862

PATIENT
  Age: 21 Year
  Sex: Male

DRUGS (3)
  1. INFLECTRA [Concomitant]
     Active Substance: INFLIXIMAB-DYYB
     Dosage: CYCLICAL
     Route: 042
     Dates: start: 20201008, end: 20201008
  2. INFLECTRA [Concomitant]
     Active Substance: INFLIXIMAB-DYYB
     Indication: CROHN^S DISEASE
     Dosage: AT EVERY 0.2,6 WEEKS, THEN EVERY 8 WEEKS, CYCLICAL
     Route: 042
     Dates: start: 20200924
  3. METHOTREXATE (TRADE NAME UNKNOWN) [Suspect]
     Active Substance: METHOTREXATE
     Indication: CROHN^S DISEASE
     Route: 065
     Dates: start: 202001

REACTIONS (6)
  - Product use in unapproved indication [Unknown]
  - Gastrointestinal ulcer [Unknown]
  - Drug ineffective for unapproved indication [Unknown]
  - Diarrhoea [Recovering/Resolving]
  - Rectal haemorrhage [Unknown]
  - Anal fistula [Not Recovered/Not Resolved]
